FAERS Safety Report 25538909 (Version 1)
Quarter: 2025Q3

REPORT INFORMATION
  Report Type: Spontaneous
  Country: US (occurrence: None)
  Receive Date: 20250709
  Receipt Date: 20250709
  Transmission Date: 20251021
  Serious: Yes (Death)
  Sender: FDA-CTU
  Company Number: None

PATIENT
  Age: 82 Year
  Sex: Female

DRUGS (24)
  1. AMBRISENTAN [Suspect]
     Active Substance: AMBRISENTAN
     Indication: Pulmonary hypertension
     Dosage: 10MG QD ORAL?
     Route: 048
     Dates: start: 20180713, end: 20250519
  2. SILDENAFIL [Suspect]
     Active Substance: SILDENAFIL
  3. TREPROSTINIL [Suspect]
     Active Substance: TREPROSTINIL
  4. FUROSEMIDE [Concomitant]
     Active Substance: FUROSEMIDE
  5. MEGESTROL [Concomitant]
     Active Substance: MEGESTROL
  6. OMEPRAZOLE [Concomitant]
     Active Substance: OMEPRAZOLE
  7. TRAZODONE [Concomitant]
     Active Substance: TRAZODONE HYDROCHLORIDE
  8. DILTIAZEM [Concomitant]
     Active Substance: DILTIAZEM
  9. ALBUTEROL [Concomitant]
     Active Substance: ALBUTEROL
  10. MYCOPHENOLIC ACID [Concomitant]
     Active Substance: MYCOPHENOLIC ACID
  11. POTASSIUM CHLORIDE [Concomitant]
     Active Substance: POTASSIUM CHLORIDE
  12. MUCINEX [Concomitant]
     Active Substance: GUAIFENESIN
  13. OXYGEN INTRANASAL [Concomitant]
  14. TYLENOL [Concomitant]
     Active Substance: ACETAMINOPHEN
  15. RECTAL SUPP [Concomitant]
  16. BISACODYL [Concomitant]
     Active Substance: BISACODYL
  17. MIDODRINE [Concomitant]
     Active Substance: MIDODRINE
  18. IPRATROPIUM BASAL SPRAY [Concomitant]
  19. DIGOXIN [Concomitant]
     Active Substance: DIGOXIN
  20. ALBUTEROL SULFATE [Concomitant]
     Active Substance: ALBUTEROL SULFATE
  21. PULMICORT TURBUHALER [Concomitant]
     Active Substance: BUDESONIDE
  22. METOLAZONE [Concomitant]
     Active Substance: METOLAZONE
  23. WIXELA INHUB [Concomitant]
     Active Substance: FLUTICASONE PROPIONATE\SALMETEROL XINAFOATE
  24. SPIRIVA RESPIMAT [Concomitant]
     Active Substance: TIOTROPIUM BROMIDE

REACTIONS (1)
  - Pneumonia [None]

NARRATIVE: CASE EVENT DATE: 20250430
